FAERS Safety Report 8036643-6 (Version None)
Quarter: 2012Q1

REPORT INFORMATION
  Report Type: 
  Country: None (occurrence: None)
  Receive Date: 20120111
  Receipt Date: 20120105
  Transmission Date: 20120608
  Serious: Yes (Hospitalization)
  Sender: FDA-Public Use
  Company Number: DE-ROCHE-1028509

PATIENT
  Sex: Female
  Weight: 80 kg

DRUGS (3)
  1. XELODA [Suspect]
     Indication: BREAST CANCER METASTATIC
     Dosage: LAST DOSE PRIOR TO SAE: 23/12/2011. 1-14 DAY EVERY 22 DAYS
     Route: 048
  2. PACLITAXEL [Suspect]
     Indication: BREAST CANCER METASTATIC
     Dosage: LAST DOSE PRIOR TO SAE: 3/1/2012
     Route: 042
     Dates: start: 20111220
  3. AVASTIN [Suspect]
     Indication: BREAST CANCER METASTATIC
     Dosage: LAST DOSE PRIOR TO SAE: 20/12/2011
     Route: 042
     Dates: start: 20111220

REACTIONS (1)
  - SKIN NECROSIS [None]
